FAERS Safety Report 8309266-9 (Version None)
Quarter: 2012Q2

REPORT INFORMATION
  Report Type: 
  Country: None (occurrence: None)
  Receive Date: 20120424
  Receipt Date: 20120413
  Transmission Date: 20120825
  Serious: Yes (Other)
  Sender: FDA-Public Use
  Company Number: BE-ELI_LILLY_AND_COMPANY-BE201202004864

PATIENT
  Sex: Female
  Weight: 60 kg

DRUGS (2)
  1. EFFIENT [Suspect]
     Indication: STENT PLACEMENT
     Dosage: 10 MG, QD
     Dates: start: 20120106
  2. ENOXAPARIN SODIUM [Concomitant]
     Dosage: UNK, UNKNOWN

REACTIONS (1)
  - DEEP VEIN THROMBOSIS [None]
